FAERS Safety Report 6917565-8 (Version None)
Quarter: 2010Q3

REPORT INFORMATION
  Report Type: 
  Country: None (occurrence: None)
  Receive Date: 20100806
  Receipt Date: 20100719
  Transmission Date: 20110219
  Serious: Yes (Hospitalization, Other)
  Sender: FDA-Public Use
  Company Number: A-US2010-38257

PATIENT
  Age: 75 Year
  Sex: Female

DRUGS (26)
  1. VENTAVIS [Suspect]
     Indication: PULMONARY ARTERIAL HYPERTENSION
     Dosage: 2.5 OR 5 UG, 6 X DAY, RESPIRATORY
     Route: 055
     Dates: start: 20091101, end: 20100211
  2. RIOCIQUAT (INVESTIGATIONAL DRUG) () [Suspect]
     Dosage: 2.0 MG, TID, ORAL; 2.5 MG, TID, ORAL
     Route: 048
     Dates: start: 20080206, end: 20091104
  3. RIOCIQUAT (INVESTIGATIONAL DRUG) () [Suspect]
     Dosage: 2.0 MG, TID, ORAL; 2.5 MG, TID, ORAL
     Route: 048
     Dates: start: 20091105
  4. PANTOPRAZOLE SODIUM [Concomitant]
  5. LACTULOSE [Concomitant]
  6. ASPIRIN [Concomitant]
  7. KONAKION [Concomitant]
  8. NOVALGIN (METAMIZOLE SODIUM) [Concomitant]
  9. VALORON (TILIDINE HYDROCHLORIDE) [Concomitant]
  10. SITAXSENTAN (SITAXENTAN) [Concomitant]
  11. FALITHROM (PHENPROCOUMON) [Concomitant]
  12. FRAXIPARIN (NADROPARIN CALCIUM) [Concomitant]
  13. TRAMADOL HYDROHLORIDE [Concomitant]
  14. COTRIM FORTE EU RHO (SULFAMETHOXAZOLE, TRIMETHOPRIM) [Concomitant]
  15. MAGNESIUM (MAGNESIUM) [Concomitant]
  16. OMEPRAZOLE [Concomitant]
  17. ENOXAPARIN SODIUM [Concomitant]
  18. OXYGEN (OXYGEN) [Concomitant]
  19. SEREVENT [Concomitant]
  20. CALCILAC (CALCIUM CARBONATE, COLECALCIFEROL) [Concomitant]
  21. BONIVA [Concomitant]
  22. NEXIUM [Concomitant]
  23. LEVOTHYROXINE SODIUM [Concomitant]
  24. RAMIPRIL [Concomitant]
  25. TORSEMIDE [Concomitant]
  26. ALLOPURINOL [Concomitant]

REACTIONS (8)
  - ABDOMINAL PAIN [None]
  - ATRIAL FLUTTER [None]
  - BALANCE DISORDER [None]
  - CONSTIPATION [None]
  - EXERCISE TOLERANCE DECREASED [None]
  - NAUSEA [None]
  - RIGHT VENTRICULAR FAILURE [None]
  - SYNCOPE [None]
